FAERS Safety Report 24570986 (Version 2)
Quarter: 2025Q2

REPORT INFORMATION
  Report Type: Report from Study
  Country: US (occurrence: US)
  Receive Date: 20241101
  Receipt Date: 20250506
  Transmission Date: 20250717
  Serious: No
  Sender: AMGEN
  Company Number: US-AMGEN-USASP2024213988

PATIENT
  Age: 57 Year
  Sex: Female

DRUGS (2)
  1. KRYSTEXXA [Suspect]
     Active Substance: PEGLOTICASE
     Indication: Gout
     Dosage: UNK UNK, Q2WK
     Route: 040
     Dates: start: 20241010
  2. KRYSTEXXA [Suspect]
     Active Substance: PEGLOTICASE
     Dosage: UNK UNK, Q2WK
     Route: 040
     Dates: start: 20241021

REACTIONS (2)
  - Inappropriate schedule of product administration [Unknown]
  - Gout [Unknown]

NARRATIVE: CASE EVENT DATE: 20241021
